FAERS Safety Report 16651448 (Version 2)
Quarter: 2019Q3

REPORT INFORMATION
  Report Type: Spontaneous
  Country: AU (occurrence: AU)
  Receive Date: 20190731
  Receipt Date: 20190829
  Transmission Date: 20191004
  Serious: Yes (Other)
  Sender: FDA-Public Use
  Company Number: AU-JNJFOC-20190725985

PATIENT
  Age: 39 Year
  Sex: Female

DRUGS (3)
  1. ROPIVACAINE. [Suspect]
     Active Substance: ROPIVACAINE HYDROCHLORIDE
     Indication: PRODUCT USED FOR UNKNOWN INDICATION
     Route: 008
     Dates: start: 20181112
  2. METOCLOPRAMIDE. [Concomitant]
     Active Substance: METOCLOPRAMIDE
     Indication: PRODUCT USED FOR UNKNOWN INDICATION
     Route: 065
  3. FENTANYL CITRATE. [Suspect]
     Active Substance: FENTANYL CITRATE
     Indication: PRODUCT USED FOR UNKNOWN INDICATION
     Route: 008
     Dates: start: 20181112

REACTIONS (5)
  - Hypotension [Recovered/Resolved]
  - Incorrect route of product administration [Unknown]
  - Exposure during pregnancy [Recovered/Resolved]
  - Off label use [Unknown]
  - Foetal heart rate deceleration abnormality [Recovered/Resolved]

NARRATIVE: CASE EVENT DATE: 20181112
